FAERS Safety Report 5157079-1 (Version None)
Quarter: 2006Q4

REPORT INFORMATION
  Report Type: 
  Country: None (occurrence: None)
  Receive Date: 20061127
  Receipt Date: 20061115
  Transmission Date: 20070319
  Serious: Yes (Other)
  Sender: FDA-Public Use
  Company Number: PHNU2006DE03775

PATIENT
  Sex: Male

DRUGS (4)
  1. VALSARTAN [Suspect]
     Indication: HYPERTENSION
     Dosage: 1 DF, QD
     Dates: start: 20060501, end: 20060901
  2. METOPROLOL [Concomitant]
     Indication: HYPERTENSION
     Dosage: 100 MG/D
  3. DIGITOXIN TAB [Concomitant]
     Indication: TACHYARRHYTHMIA
     Dosage: 0.07 MG/D (NOT ON WEEKENDS)
  4. CLOPIDOGREL [Concomitant]
     Indication: TRANSIENT ISCHAEMIC ATTACK
     Dosage: 75 MG/D

REACTIONS (1)
  - TACHYCARDIA [None]
